FAERS Safety Report 22019456 (Version 6)
Quarter: 2023Q2

REPORT INFORMATION
  Report Type: Report from Study
  Country: JP (occurrence: JP)
  Receive Date: 20230222
  Receipt Date: 20230621
  Transmission Date: 20230722
  Serious: Yes (Hospitalization)
  Sender: FDA-Public Use
  Company Number: JP-ALNYLAM PHARMACEUTICALS, INC.-ALN-2023-000516

PATIENT

DRUGS (23)
  1. ONPATTRO [Suspect]
     Active Substance: PATISIRAN SODIUM
     Indication: Hereditary neuropathic amyloidosis
     Dosage: 15 MILLIGRAM
     Route: 041
     Dates: start: 20211122, end: 20211213
  2. ONPATTRO [Suspect]
     Active Substance: PATISIRAN SODIUM
     Dosage: 17.4 MILLIGRAM
     Route: 041
     Dates: start: 20220105, end: 20220124
  3. ONPATTRO [Suspect]
     Active Substance: PATISIRAN SODIUM
     Dosage: 15.6 MILLIGRAM
     Route: 041
     Dates: start: 20220221, end: 20220221
  4. ONPATTRO [Suspect]
     Active Substance: PATISIRAN SODIUM
     Dosage: 15.2 MILLIGRAM
     Route: 041
     Dates: start: 20220314, end: 20220404
  5. ONPATTRO [Suspect]
     Active Substance: PATISIRAN SODIUM
     Dosage: 15.4 MILLIGRAM
     Route: 041
     Dates: start: 20220425, end: 20220425
  6. ONPATTRO [Suspect]
     Active Substance: PATISIRAN SODIUM
     Dosage: 15.5 MILLIGRAM
     Route: 041
     Dates: start: 20220516, end: 20220516
  7. ONPATTRO [Suspect]
     Active Substance: PATISIRAN SODIUM
     Dosage: 16.0 MILLIGRAM
     Route: 041
     Dates: start: 20220606, end: 20220606
  8. ONPATTRO [Suspect]
     Active Substance: PATISIRAN SODIUM
     Dosage: 15.3 MILLIGRAM
     Route: 041
     Dates: start: 20220627, end: 20220627
  9. ONPATTRO [Suspect]
     Active Substance: PATISIRAN SODIUM
     Dosage: 15.0 MILLIGRAM
     Route: 041
     Dates: start: 20220725, end: 20220725
  10. ONPATTRO [Suspect]
     Active Substance: PATISIRAN SODIUM
     Dosage: 15.15 MILLIGRAM
     Route: 041
     Dates: start: 20220815, end: 20220815
  11. ONPATTRO [Suspect]
     Active Substance: PATISIRAN SODIUM
     Dosage: 15.27 MILLIGRAM
     Route: 041
     Dates: start: 20220905, end: 20220905
  12. ONPATTRO [Suspect]
     Active Substance: PATISIRAN SODIUM
     Dosage: 15.0 MILLIGRAM
     Route: 041
     Dates: start: 20220926, end: 20220926
  13. ONPATTRO [Suspect]
     Active Substance: PATISIRAN SODIUM
     Dosage: 15.2 MILLIGRAM
     Route: 041
     Dates: start: 20221017, end: 20221017
  14. ONPATTRO [Suspect]
     Active Substance: PATISIRAN SODIUM
     Dosage: 15.5 MILLIGRAM
     Route: 041
     Dates: start: 20221107, end: 20221107
  15. ONPATTRO [Suspect]
     Active Substance: PATISIRAN SODIUM
     Dosage: 15.0 MILLIGRAM
     Route: 041
     Dates: start: 20221128, end: 20221128
  16. ONPATTRO [Suspect]
     Active Substance: PATISIRAN SODIUM
     Dosage: 15.3 MILLIGRAM
     Route: 041
     Dates: start: 20221219, end: 20221219
  17. ONPATTRO [Suspect]
     Active Substance: PATISIRAN SODIUM
     Dosage: 17.4 MILLIGRAM
     Route: 041
     Dates: start: 20230116, end: 20230116
  18. AMVUTTRA [Suspect]
     Active Substance: VUTRISIRAN
     Indication: Hereditary neuropathic amyloidosis
     Dosage: 25 MILLIGRAM, ONCE EVERY 3 MONTHS
     Route: 058
     Dates: start: 20230206
  19. ORGADRONE [Concomitant]
     Active Substance: DEXAMETHASONE SODIUM PHOSPHATE
     Indication: Prophylaxis
     Dosage: 9.5 MILLIGRAM, WHEN ONPATTRO IS ADMINISTERED
     Route: 065
     Dates: start: 20211122, end: 20230116
  20. ACETAMINOPHEN [Concomitant]
     Active Substance: ACETAMINOPHEN
     Indication: Prophylaxis
     Dosage: 500 MILLIGRAM, WHEN ONPATTRO IS ADMINISTERED
     Route: 065
     Dates: start: 20211122, end: 20230116
  21. FAMOTIDINE [Concomitant]
     Active Substance: FAMOTIDINE
     Indication: Prophylaxis
     Dosage: 20 MILLIGRAM, WHEN ONPATTRO IS ADMINISTERED
     Route: 065
     Dates: start: 20211122, end: 20230116
  22. HYDROXYZINE HYDROCHLORIDE [Concomitant]
     Active Substance: HYDROXYZINE HYDROCHLORIDE
     Indication: Prophylaxis
     Dosage: 25 MILLIGRAM, WHEN ONPATTRO IS ADMINISTERED
     Route: 065
     Dates: start: 20211122, end: 20230116
  23. VITAMINS [Concomitant]
     Active Substance: VITAMINS
     Indication: Vitamin supplementation
     Dosage: 1 GRAM, QD
     Route: 065
     Dates: start: 20211122, end: 20230116

REACTIONS (5)
  - Hypothyroidism [Recovered/Resolved]
  - Weight increased [Recovering/Resolving]
  - Asthenia [Recovered/Resolved]
  - Gait disturbance [Recovered/Resolved]
  - Weight increased [Recovering/Resolving]

NARRATIVE: CASE EVENT DATE: 20230101
